FAERS Safety Report 18431178 (Version 1)
Quarter: 2020Q4

REPORT INFORMATION
  Report Type: Spontaneous
  Country: US (occurrence: US)
  Receive Date: 20201027
  Receipt Date: 20201027
  Transmission Date: 20210114
  Serious: No
  Sender: FDA-Public Use
  Company Number: None

PATIENT
  Sex: Female

DRUGS (6)
  1. PALONESTRON [Concomitant]
  2. CARBOPLATIN. [Concomitant]
     Active Substance: CARBOPLATIN
  3. DEXAMETHASONE. [Concomitant]
     Active Substance: DEXAMETHASONE
  4. PACLITAXEL MDV 100MG/16.7ML [Suspect]
     Active Substance: PACLITAXEL
     Indication: BREAST CANCER FEMALE
     Route: 042
     Dates: start: 20201015
  5. FAMOTIDINE. [Concomitant]
     Active Substance: FAMOTIDINE
  6. CIPHENYHYDRAMINE [Concomitant]

REACTIONS (1)
  - Adverse drug reaction [None]
